FAERS Safety Report 9099547 (Version 6)
Quarter: 2013Q3

REPORT INFORMATION
  Report Type: Spontaneous
  Country: US (occurrence: US)
  Receive Date: 20130214
  Receipt Date: 20130702
  Transmission Date: 20140515
  Serious: Yes (Other)
  Sender: FDA-Public Use
  Company Number: US-PFIZER INC-2013057686

PATIENT
  Age: 76 Year
  Sex: Female

DRUGS (3)
  1. LYRICA [Suspect]
     Indication: FIBROMYALGIA
     Dosage: 50 MG, 2X/DAY
     Route: 048
     Dates: start: 20120221
  2. AMLODIPINE BESYLATE [Concomitant]
     Dosage: 10 MG, 1X/DAY
     Route: 048
  3. CALCIUM 600 + D [Concomitant]
     Dosage: 1 DF, 1X/DAY
     Route: 048

REACTIONS (5)
  - Back pain [Unknown]
  - Gait disturbance [Unknown]
  - Osteoarthritis [Unknown]
  - Fatigue [Unknown]
  - Drug ineffective [Unknown]
